FAERS Safety Report 13277526 (Version 1)
Quarter: 2017Q1

REPORT INFORMATION
  Report Type: Report from Study
  Country: US (occurrence: US)
  Receive Date: 20170228
  Receipt Date: 20170228
  Transmission Date: 20170428
  Serious: Yes (Other)
  Sender: FDA-Public Use
  Company Number: US-ALEXION-A201701852

PATIENT
  Sex: Male

DRUGS (1)
  1. SOLIRIS [Suspect]
     Active Substance: ECULIZUMAB
     Indication: PAROXYSMAL NOCTURNAL HAEMOGLOBINURIA
     Route: 042

REACTIONS (7)
  - Lipoma [Unknown]
  - Renal disorder [Unknown]
  - Brain neoplasm [Not Recovered/Not Resolved]
  - Eye pain [Unknown]
  - Headache [Unknown]
  - Nephritis [Unknown]
  - Systemic lupus erythematosus [Unknown]
